FAERS Safety Report 8488224-8 (Version None)
Quarter: 2012Q3

REPORT INFORMATION
  Report Type: 
  Country: None (occurrence: None)
  Receive Date: 20120705
  Receipt Date: 20120628
  Transmission Date: 20120928
  Serious: No
  Sender: FDA-Public Use
  Company Number: US-B.I. PHARMACEUTICALS,INC./RIDGEFIELD-2012-BP-14738BP

PATIENT
  Sex: Female

DRUGS (5)
  1. CARDIZEM CD [Suspect]
     Indication: ATRIAL FIBRILLATION
     Route: 048
     Dates: start: 20120610
  2. BYSTOLIC [Concomitant]
     Indication: HYPERTENSION
     Dosage: 10 MG
     Route: 048
     Dates: start: 20100101
  3. LORAZEPAM [Concomitant]
     Indication: ANXIETY
     Route: 048
  4. PRADAXA [Suspect]
     Indication: ATRIAL FIBRILLATION
     Dosage: 300 MG
     Route: 048
     Dates: start: 20120610
  5. LISINOPRIL [Concomitant]
     Indication: HYPERTENSION
     Route: 048

REACTIONS (5)
  - DIARRHOEA [None]
  - WEIGHT DECREASED [None]
  - FATIGUE [None]
  - DYSPEPSIA [None]
  - FLATULENCE [None]
